FAERS Safety Report 24653558 (Version 1)
Quarter: 2024Q4

REPORT INFORMATION
  Report Type: Spontaneous
  Country: US (occurrence: None)
  Receive Date: 20241121
  Receipt Date: 20241121
  Transmission Date: 20250114
  Serious: Yes (Life-Threatening, Other)
  Sender: Public
  Company Number: None

PATIENT
  Age: 41 Year
  Sex: Female
  Weight: 96.3 kg

DRUGS (1)
  1. STELARA [Suspect]
     Active Substance: USTEKINUMAB
     Indication: Crohn^s disease
     Dosage: OTHER FREQUENCY : ONCE;?
     Route: 041

REACTIONS (4)
  - Chest discomfort [None]
  - Flushing [None]
  - Flank pain [None]
  - Infusion related reaction [None]

NARRATIVE: CASE EVENT DATE: 20241121
